FAERS Safety Report 7689406-5 (Version None)
Quarter: 2011Q3

REPORT INFORMATION
  Report Type: 
  Country: None (occurrence: None)
  Receive Date: 20110817
  Receipt Date: 20110809
  Transmission Date: 20111222
  Serious: Yes (Other)
  Sender: FDA-Public Use
  Company Number: PHHY2011DE71739

PATIENT
  Sex: Female

DRUGS (1)
  1. ZOLEDRONIC ACID [Suspect]
     Indication: NON-HODGKIN'S LYMPHOMA

REACTIONS (11)
  - ORAL CAVITY FISTULA [None]
  - PAIN [None]
  - SWELLING [None]
  - OSTEONECROSIS OF JAW [None]
  - INFECTION [None]
  - PATHOLOGICAL FRACTURE [None]
  - OSTEOLYSIS [None]
  - FISTULA [None]
  - EXPOSED BONE IN JAW [None]
  - ABSCESS [None]
  - HYPOAESTHESIA ORAL [None]
